FAERS Safety Report 6717542-6 (Version None)
Quarter: 2010Q2

REPORT INFORMATION
  Report Type: 
  Country: None (occurrence: None)
  Receive Date: 20100510
  Receipt Date: 20100430
  Transmission Date: 20101027
  Serious: Yes (Other)
  Sender: FDA-Public Use
  Company Number: US-ASTRAZENECA-2010SE19800

PATIENT
  Sex: Female

DRUGS (2)
  1. SEROQUEL [Suspect]
     Route: 048
     Dates: start: 20020101
  2. NORVAIR [Interacting]
     Route: 065

REACTIONS (3)
  - ACQUIRED IMMUNODEFICIENCY SYNDROME [None]
  - DRUG INTERACTION [None]
  - WEIGHT INCREASED [None]
